FAERS Safety Report 21475291 (Version 2)
Quarter: 2023Q1

REPORT INFORMATION
  Report Type: Spontaneous
  Country: DE (occurrence: DE)
  Receive Date: 20221019
  Receipt Date: 20230215
  Transmission Date: 20230417
  Serious: Yes (Life-Threatening)
  Sender: FDA-Public Use
  Company Number: DE-DCGMA-22199543

PATIENT
  Age: 39 Year
  Sex: Male
  Weight: 98 kg

DRUGS (2)
  1. STELARA [Suspect]
     Active Substance: USTEKINUMAB
     Indication: Product used for unknown indication
     Route: 043
     Dates: start: 20220707
  2. MESALAMINE [Concomitant]
     Active Substance: MESALAMINE
     Indication: Product used for unknown indication
     Route: 065

REACTIONS (3)
  - Myocarditis [Unknown]
  - Cardiac failure acute [Unknown]
  - Off label use [Unknown]

NARRATIVE: CASE EVENT DATE: 20220723
